FAERS Safety Report 7760743-9 (Version None)
Quarter: 2011Q3

REPORT INFORMATION
  Report Type: 
  Country: None (occurrence: None)
  Receive Date: 20110919
  Receipt Date: 20110915
  Transmission Date: 20111222
  Serious: Yes (Other)
  Sender: FDA-Public Use
  Company Number: AU-ALLERGAN-1110772US

PATIENT
  Age: 63 Year
  Sex: Female

DRUGS (3)
  1. JUVEDERM ULTRA XC [Concomitant]
     Dosage: UNK
     Dates: start: 20090905, end: 20090905
  2. BOTULINUM TOXIN TYPE A [Suspect]
     Indication: PRODUCT USED FOR UNKNOWN INDICATION
     Dosage: 24 UNITS, SINGLE
     Route: 030
     Dates: start: 20090905, end: 20090905
  3. JUVEDERM ULTRA PLUS XC [Concomitant]
     Indication: PRODUCT USED FOR UNKNOWN INDICATION
     Dosage: UNK
     Dates: start: 20090905, end: 20090905

REACTIONS (1)
  - HYPERTENSION [None]
